FAERS Safety Report 23961619 (Version 1)
Quarter: 2024Q2

REPORT INFORMATION
  Report Type: Spontaneous
  Country: US (occurrence: None)
  Receive Date: 20240610
  Receipt Date: 20240610
  Transmission Date: 20240715
  Serious: Yes (Hospitalization)
  Sender: FDA-Public Use
  Company Number: None

PATIENT
  Sex: Female

DRUGS (6)
  1. PULMOZYME [Suspect]
     Active Substance: DORNASE ALFA
     Indication: Cystic fibrosis lung
     Dosage: OTHER QUANTITY : 2.5MLS (2.5MG TOT);?FREQUENCY : DAILY;?
     Route: 055
     Dates: start: 20180606
  2. CREON [Concomitant]
     Active Substance: PANCRELIPASE AMYLASE\PANCRELIPASE LIPASE\PANCRELIPASE PROTEASE
  3. PULMOZYME [Concomitant]
     Active Substance: DORNASE ALFA
  4. SYMDEKO [Concomitant]
  5. TOBI [Concomitant]
  6. TOBRAMYCIN [Concomitant]

REACTIONS (3)
  - Hospitalisation [None]
  - Emergency care [None]
  - Therapy interrupted [None]
